FAERS Safety Report 9856718 (Version 3)
Quarter: 2014Q1

REPORT INFORMATION
  Report Type: Spontaneous
  Country: US (occurrence: US)
  Receive Date: 20140130
  Receipt Date: 20140306
  Transmission Date: 20141002
  Serious: Yes (Other)
  Sender: FDA-Public Use
  Company Number: US-BAYER-2014-014298

PATIENT
  Age: 56 Year
  Sex: Female

DRUGS (3)
  1. CLIMARA PRO [Suspect]
     Indication: MENOPAUSAL SYMPTOMS
     Dosage: 1 DF, OW
     Route: 062
  2. CLIMARA PRO [Suspect]
     Indication: ALOPECIA
  3. CLIMARA PRO [Suspect]
     Indication: FATIGUE

REACTIONS (5)
  - Postmenopausal haemorrhage [Recovered/Resolved]
  - Postmenopausal haemorrhage [Not Recovered/Not Resolved]
  - Application site irritation [Not Recovered/Not Resolved]
  - Application site scar [Not Recovered/Not Resolved]
  - Product adhesion issue [None]
